FAERS Safety Report 9853504 (Version 1)
Quarter: 2014Q1

REPORT INFORMATION
  Report Type: Spontaneous
  Country: GB (occurrence: GB)
  Receive Date: 20140129
  Receipt Date: 20140129
  Transmission Date: 20141002
  Serious: Yes (Disabling)
  Sender: FDA-Public Use
  Company Number: GB-TEVA-459073ISR

PATIENT
  Age: 60 Year
  Sex: Male
  Weight: 82.55 kg

DRUGS (14)
  1. SIMVASTATIN [Suspect]
     Indication: HYPERCHOLESTEROLAEMIA
     Dosage: FORGOT DOSAGE
     Route: 048
     Dates: end: 20100404
  2. ROSUVASTATIN [Suspect]
     Indication: HYPERCHOLESTEROLAEMIA
  3. STATIN [Suspect]
     Indication: HYPERCHOLESTEROLAEMIA
  4. INSULIN GLULISINE [Concomitant]
  5. ASPIRIN [Concomitant]
  6. METFORMIN [Concomitant]
     Dosage: 2000 MILLIGRAM DAILY;
  7. INSULIN GLARGINE [Concomitant]
     Dosage: INJECTION EVENING.
  8. CO-CODAMOL [Concomitant]
     Dosage: 15/500MG
  9. IBUPROFEN [Concomitant]
  10. OMEPRAZOLE [Concomitant]
     Dates: start: 201311
  11. LAXIDO [Concomitant]
     Indication: GASTROINTESTINAL DISORDER
  12. VOLTAROL [Concomitant]
     Indication: ARTHRALGIA
  13. DEEP HEAT [Concomitant]
     Indication: ARTHRALGIA
     Dosage: APPLIED ON A MORNING TO KNEES TO RELIEVE PAIN
  14. GREEN-LIPPED MUSSEL [Concomitant]

REACTIONS (2)
  - Muscle atrophy [Recovered/Resolved]
  - Amnesia [Recovered/Resolved]
